FAERS Safety Report 11562062 (Version 1)
Quarter: 2015Q3

REPORT INFORMATION
  Report Type: Spontaneous
  Country: US (occurrence: US)
  Receive Date: 20150916
  Receipt Date: 20150916
  Transmission Date: 20151125
  Serious: No
  Sender: FDA-Public Use
  Company Number: US-ELI_LILLY_AND_COMPANY-US200811005240

PATIENT
  Age: 66 Year
  Sex: Female

DRUGS (4)
  1. CALCIUM [Concomitant]
     Active Substance: CALCIUM
  2. FORTEO [Suspect]
     Active Substance: TERIPARATIDE
     Dates: start: 200704
  3. DILANTIN [Concomitant]
     Active Substance: PHENYTOIN
  4. TYLENOL /USA/ [Concomitant]

REACTIONS (4)
  - Myalgia [Unknown]
  - Joint stiffness [Unknown]
  - Lyme disease [Unknown]
  - Arthralgia [Unknown]

NARRATIVE: CASE EVENT DATE: 200707
